FAERS Safety Report 9877073 (Version 2)
Quarter: 2014Q2

REPORT INFORMATION
  Report Type: Report from Study
  Country: CA (occurrence: CA)
  Receive Date: 20140206
  Receipt Date: 20140521
  Transmission Date: 20141212
  Serious: Yes (Other)
  Sender: FDA-Public Use
  Company Number: CA-JNJFOC-20140201580

PATIENT
  Sex: Female
  Weight: 90 kg

DRUGS (1)
  1. SIMPONI [Suspect]
     Indication: ANKYLOSING SPONDYLITIS
     Dosage: PATIENT RECEIVED APPROX 5 DOSES
     Route: 058
     Dates: start: 20140113

REACTIONS (1)
  - Injection site cellulitis [Recovered/Resolved]
